FAERS Safety Report 9012123 (Version 2)
Quarter: 2013Q1

REPORT INFORMATION
  Report Type: Spontaneous
  Country: US (occurrence: None)
  Receive Date: 20121227
  Receipt Date: 20130104
  Transmission Date: 20140127
  Serious: Yes (Life-Threatening, Hospitalization, Other)
  Sender: FDA-Public Use
  Company Number: AUR-APL-2012-05270

PATIENT
  Age: 65 Year
  Sex: Female

DRUGS (15)
  1. LISINOPRIL (LISINOPRIL) [Suspect]
     Indication: PRODUCT USED FOR UNKNOWN INDICATION
  2. MOXIFLOXACIIN [Suspect]
     Indication: UPPER RESPIRATORY TRACT INFECTION
  3. ASPIRIN (ACETYLSALICYLIC ACID) [Suspect]
     Indication: PRODUCT USED FOR UNKNOWN INDICATION
  4. IBUPROFEN (IBUPROFEN) [Suspect]
     Indication: PRODUCT USED FOR UNKNOWN INDICATION
  5. AMLODIPINE (AMLODIPINE) [Concomitant]
  6. METOPROLOL TARTRATE [Suspect]
  7. HYDROCHLOROTHIAZIDE (HYDROCHLOROTHIAZIDE) [Concomitant]
  8. SIMVASTATIN (SIMVASTATIN) [Concomitant]
  9. GLIPIZIDE (GLIPIZIDE) [Concomitant]
  10. BUPROPION  (BUPROPION) [Concomitant]
  11. ALPRAZOLAM (ALPRAZOLAM) [Concomitant]
  12. METHOCARBAMOL (METHOCARBAMOL) [Concomitant]
  13. CALCIUM WITH VITAMIN D (LEKOVIT CA) [Concomitant]
  14. ALBUTEROL (SALBUTAMOL) [Concomitant]
  15. PREDNISONE (PREDNISONE) [Concomitant]

REACTIONS (13)
  - Angioedema [None]
  - Drug hypersensitivity [None]
  - Respiratory distress [None]
  - Aphasia [None]
  - Dysphagia [None]
  - Somnolence [None]
  - Mental status changes [None]
  - Pneumonia [None]
  - Upper respiratory tract infection [None]
  - Transient ischaemic attack [None]
  - Haemorrhage [None]
  - Injury [None]
  - Hypotension [None]
